FAERS Safety Report 9302611 (Version 1)
Quarter: 2013Q2

REPORT INFORMATION
  Report Type: Spontaneous
  Country: SE (occurrence: None)
  Receive Date: 20130517
  Receipt Date: 20130517
  Transmission Date: 20140414
  Serious: Yes (Hospitalization)
  Sender: FDA-Public Use
  Company Number: 2013SE0174

PATIENT
  Age: 72 Year
  Sex: Male

DRUGS (1)
  1. KINERET [Suspect]
     Indication: ACUTE FEBRILE NEUTROPHILIC DERMATOSIS
     Dates: start: 20130118, end: 201302

REACTIONS (4)
  - Injection site rash [None]
  - Pain [None]
  - Erythema [None]
  - Dry eye [None]
